FAERS Safety Report 16394436 (Version 5)
Quarter: 2019Q3

REPORT INFORMATION
  Report Type: Report from Study
  Country: US (occurrence: US)
  Receive Date: 20190605
  Receipt Date: 20190808
  Transmission Date: 20191004
  Serious: Yes (Other)
  Sender: FDA-Public Use
  Company Number: PHEH2019US023453

PATIENT
  Sex: Male

DRUGS (1)
  1. ENTRESTO [Suspect]
     Active Substance: SACUBITRIL\VALSARTAN
     Indication: CARDIAC FAILURE
     Dosage: UNK
     Route: 048

REACTIONS (7)
  - Diarrhoea [Unknown]
  - Hypotension [Unknown]
  - Arthritis [Unknown]
  - Limb injury [Unknown]
  - Pain [Unknown]
  - Cardiac disorder [Unknown]
  - Dizziness [Unknown]
